FAERS Safety Report 9394663 (Version 1)
Quarter: 2013Q3

REPORT INFORMATION
  Report Type: Spontaneous
  Country: US (occurrence: None)
  Receive Date: 20130709
  Receipt Date: 20130709
  Transmission Date: 20140515
  Serious: No
  Sender: FDA-Public Use
  Company Number: None

PATIENT
  Age: 45 Year
  Sex: Female
  Weight: 92.8 kg

DRUGS (2)
  1. DAPTOMYCIN [Suspect]
     Indication: PARASPINAL ABSCESS
     Dosage: EVERY 24 HOURS
     Route: 042
     Dates: start: 20130522, end: 20130703
  2. CETRIAXONE [Concomitant]

REACTIONS (3)
  - Blood creatine phosphokinase increased [None]
  - Muscular weakness [None]
  - Myalgia [None]
